FAERS Safety Report 17062922 (Version 1)
Quarter: 2019Q4

REPORT INFORMATION
  Report Type: Spontaneous
  Country: GB (occurrence: GB)
  Receive Date: 20191122
  Receipt Date: 20191122
  Transmission Date: 20200122
  Serious: Yes (Other)
  Sender: FDA-Public Use
  Company Number: GB-TEVA-2019-GB-1139543

PATIENT
  Age: 64 Year
  Sex: Male
  Weight: 83 kg

DRUGS (3)
  1. JENTADUETO [Concomitant]
     Active Substance: LINAGLIPTIN\METFORMIN HYDROCHLORIDE
     Dosage: 2.5 MG OF LINAGLIPTIN AND 1G OF METFORMIN HYDROCHLORIDE. 2 DOSAGE FORMS
  2. PIOGLITAZONE. [Suspect]
     Active Substance: PIOGLITAZONE
     Dosage: 45 MG
     Dates: start: 20150526, end: 20180522
  3. LANSOPRAZOLE. [Concomitant]
     Active Substance: LANSOPRAZOLE
     Dosage: 30 MG

REACTIONS (1)
  - Bladder neoplasm [Not Recovered/Not Resolved]
